FAERS Safety Report 8812566 (Version 2)
Quarter: 2012Q4

REPORT INFORMATION
  Report Type: 
  Country: JM (occurrence: JM)
  Receive Date: 20120927
  Receipt Date: 20121004
  Transmission Date: 20130627
  Serious: Yes (Death, Hospitalization)
  Sender: FDA-Public Use
  Company Number: PHHO2005JM12191

PATIENT
  Age: 62 Year
  Sex: Male
  Weight: 125 kg

DRUGS (6)
  1. GLIVEC [Suspect]
     Indication: CHRONIC MYELOID LEUKAEMIA
     Dates: start: 20030529
  2. GLIVEC [Suspect]
     Dosage: 400 mg, UNK
     Route: 048
     Dates: start: 200306, end: 20050728
  3. WARFARIN [Suspect]
     Indication: PULMONARY EMBOLISM
  4. AUGMENTIN [Suspect]
  5. ALLOPURINOL [Concomitant]
  6. ANTIHYPERTENSIVES [Concomitant]

REACTIONS (4)
  - Death [Fatal]
  - Upper gastrointestinal haemorrhage [Unknown]
  - Gastritis [Unknown]
  - Duodenal ulcer [Unknown]
